FAERS Safety Report 5486380-7 (Version None)
Quarter: 2007Q4

REPORT INFORMATION
  Report Type: 
  Country: None (occurrence: None)
  Receive Date: 20071016
  Receipt Date: 20071001
  Transmission Date: 20080405
  Serious: Yes (Hospitalization, Other)
  Sender: FDA-Public Use
  Company Number: JP-ELI_LILLY_AND_COMPANY-JP200708002127

PATIENT
  Age: 68 Year
  Sex: Male

DRUGS (4)
  1. GEMZAR [Suspect]
     Indication: PANCREATIC CARCINOMA
     Dosage: 800 MG, OTHER
     Route: 042
  2. GEMZAR [Suspect]
     Dosage: 1000 MG, OTHER
     Route: 042
  3. THERAPEUTIC RADIOPHARMACEUTICALS [Concomitant]
     Indication: PANCREATIC CARCINOMA
     Dosage: 1.5 GY, 2/D 15DAYS
  4. TS 1 [Concomitant]
     Indication: PANCREATIC CARCINOMA
     Dosage: 80 MG, DAILY (1/D)
     Route: 048

REACTIONS (4)
  - DIABETES MELLITUS [None]
  - HAEMOGLOBIN DECREASED [None]
  - PLATELET COUNT DECREASED [None]
  - WHITE BLOOD CELL COUNT DECREASED [None]
